FAERS Safety Report 7223307-1 (Version None)
Quarter: 2011Q1

REPORT INFORMATION
  Report Type: 
  Country: None (occurrence: None)
  Receive Date: 20110112
  Receipt Date: 20100422
  Transmission Date: 20110831
  Serious: No
  Sender: FDA-Public Use
  Company Number: US-ALLERGAN-1005274US

PATIENT
  Age: 57 Year
  Sex: Female

DRUGS (11)
  1. PREDNISONE [Concomitant]
     Route: 048
  2. ALREX [Concomitant]
  3. MULTI-VITAMINS [Concomitant]
  4. RESTASIS [Suspect]
     Indication: DRY EYE
     Dosage: UNK
     Route: 047
     Dates: start: 20090301
  5. PROGRAF [Concomitant]
  6. ATENOLOL [Concomitant]
     Indication: HYPERTENSION
  7. ACIPHEX [Concomitant]
  8. SYSTANE [Concomitant]
  9. GENEVA [Concomitant]
  10. FLAXSEED OIL [Concomitant]
  11. FISH OIL [Concomitant]

REACTIONS (1)
  - ABNORMAL SENSATION IN EYE [None]
